FAERS Safety Report 7623184-0 (Version None)
Quarter: 2011Q3

REPORT INFORMATION
  Report Type: 
  Country: None (occurrence: None)
  Receive Date: 20110720
  Receipt Date: 20110711
  Transmission Date: 20111222
  Serious: Yes (Hospitalization)
  Sender: FDA-Public Use
  Company Number: US-JNJFOC-20110704516

PATIENT
  Sex: Female
  Weight: 59.42 kg

DRUGS (4)
  1. FLEXERIL [Suspect]
     Indication: MUSCLE SPASMS
     Route: 065
     Dates: end: 20090101
  2. ATENOLOL [Concomitant]
     Indication: ARRHYTHMIA
     Route: 048
     Dates: start: 20100101
  3. ATENOLOL [Concomitant]
     Indication: HYPERTENSION
     Route: 048
     Dates: start: 20100101
  4. SYNTHROID [Concomitant]
     Indication: HYPOTHYROIDISM
     Route: 048
     Dates: start: 20040101

REACTIONS (3)
  - PSEUDOMEMBRANOUS COLITIS [None]
  - MUSCLE SPASMS [None]
  - ARRHYTHMIA [None]
